FAERS Safety Report 20217113 (Version 2)
Quarter: 2022Q2

REPORT INFORMATION
  Report Type: Spontaneous
  Country: FR (occurrence: FR)
  Receive Date: 20211222
  Receipt Date: 20220623
  Transmission Date: 20220720
  Serious: Yes (Hospitalization, Other)
  Sender: FDA-Public Use
  Company Number: FR-GLAXOSMITHKLINE-FR2021EME238725

PATIENT
  Age: 94 Year
  Sex: Female
  Weight: 49 kg

DRUGS (7)
  1. LORATADINE [Suspect]
     Active Substance: LORATADINE
     Indication: Hypersensitivity
     Dosage: 1 MILLIMOLE
     Route: 048
  2. LORATADINE [Suspect]
     Active Substance: LORATADINE
     Dosage: 1 DOSAGE FORM
     Route: 048
     Dates: start: 2021, end: 20210628
  3. LOSARTAN [Suspect]
     Active Substance: LOSARTAN
     Indication: Hypertension
     Dosage: 1 MILLIMOLE, (1 MMOL 50 MG/12.5 MG)
     Route: 048
  4. LOSARTAN [Suspect]
     Active Substance: LOSARTAN
     Dosage: 1 DOSAGE FORM
     Route: 048
     Dates: start: 2021, end: 20210628
  5. PAROXETINE [Suspect]
     Active Substance: PAROXETINE
     Indication: Depression
     Dosage: 1 MILLIMOLE, (1 MMOL 0.2% GEL)
     Route: 048
     Dates: start: 20210607, end: 20210628
  6. CARBOMER [Concomitant]
     Active Substance: CARBOMER
     Indication: Dry eye
     Dosage: 6 MILLIMOLE
     Route: 047
     Dates: start: 20210414, end: 20210706
  7. OXAZEPAM [Concomitant]
     Active Substance: OXAZEPAM
     Indication: Depression
     Dosage: 1.5 MMOL 10 MG
     Route: 048
     Dates: start: 20210623

REACTIONS (1)
  - Hyponatraemia [Recovered/Resolved]

NARRATIVE: CASE EVENT DATE: 20210628
